FAERS Safety Report 12263291 (Version 2)
Quarter: 2016Q3

REPORT INFORMATION
  Report Type: Spontaneous
  Country: FR (occurrence: FR)
  Receive Date: 20160413
  Receipt Date: 20160726
  Transmission Date: 20161109
  Serious: Yes (Other)
  Sender: FDA-Public Use
  Company Number: FR-MYLANLABS-2014M1008424

PATIENT

DRUGS (1)
  1. TRAMADOL MYLAN 50 MG, G?LULE [Suspect]
     Active Substance: TRAMADOL
     Indication: MUSCULOSKELETAL CHEST PAIN
     Dosage: 1 DF, TOTAL
     Dates: start: 20140625

REACTIONS (6)
  - Decreased appetite [Recovered/Resolved]
  - Feeling hot [Not Recovered/Not Resolved]
  - Dry mouth [Recovered/Resolved]
  - Sleep disorder [Recovered/Resolved]
  - Hyperhidrosis [Not Recovered/Not Resolved]
  - Delirium [Recovered/Resolved]

NARRATIVE: CASE EVENT DATE: 20140625
